FAERS Safety Report 17933200 (Version 2)
Quarter: 2020Q3

REPORT INFORMATION
  Report Type: Spontaneous
  Country: US (occurrence: US)
  Receive Date: 20200624
  Receipt Date: 20200730
  Transmission Date: 20201103
  Serious: No
  Sender: FDA-Public Use
  Company Number: US-GLAXOSMITHKLINE-US2020AMR106479

PATIENT
  Sex: Female

DRUGS (3)
  1. PREDNISONE. [Suspect]
     Active Substance: PREDNISONE
     Indication: PRODUCT USED FOR UNKNOWN INDICATION
     Dosage: UNK
     Route: 065
  2. NUCALA [Suspect]
     Active Substance: MEPOLIZUMAB
     Indication: ASTHMA
  3. NUCALA [Suspect]
     Active Substance: MEPOLIZUMAB
     Indication: EOSINOPHILIC GRANULOMATOSIS WITH POLYANGIITIS
     Dosage: UNK
     Route: 065
     Dates: start: 20170624

REACTIONS (8)
  - Papule [Not Recovered/Not Resolved]
  - Energy increased [Unknown]
  - Increased tendency to bruise [Not Recovered/Not Resolved]
  - Insomnia [Unknown]
  - Product dose omission issue [Recovered/Resolved]
  - Adverse drug reaction [Not Recovered/Not Resolved]
  - Scar [Unknown]
  - Skin fragility [Unknown]
